FAERS Safety Report 15046033 (Version 1)
Quarter: 2018Q2

REPORT INFORMATION
  Report Type: Spontaneous
  Country: US (occurrence: US)
  Receive Date: 20180621
  Receipt Date: 20180621
  Transmission Date: 20180711
  Serious: Yes (Other)
  Sender: FDA-Public Use
  Company Number: US-SUNOVION-2018SUN002501

PATIENT
  Age: 79 Year
  Sex: Male

DRUGS (1)
  1. LONHALA MAGNAIR [Suspect]
     Active Substance: GLYCOPYRROLATE
     Indication: EMPHYSEMA
     Dosage: 1 ML, BID
     Route: 055
     Dates: start: 20180602, end: 20180615

REACTIONS (2)
  - Salivary hypersecretion [Unknown]
  - Throat irritation [Unknown]

NARRATIVE: CASE EVENT DATE: 20180602
